FAERS Safety Report 22595077 (Version 1)
Quarter: 2023Q2

REPORT INFORMATION
  Report Type: Spontaneous
  Country: US (occurrence: None)
  Receive Date: 20230612
  Receipt Date: 20230612
  Transmission Date: 20230721
  Serious: Yes (Other)
  Sender: FDA-Public Use
  Company Number: None

PATIENT
  Age: 64 Year
  Sex: Female
  Weight: 108.9 kg

DRUGS (20)
  1. MOUNJARO [Suspect]
     Active Substance: TIRZEPATIDE
     Indication: Diabetes mellitus
     Dosage: OTHER QUANTITY : 1 INJECTION(S);?
     Route: 058
  2. FAMOTODINE [Concomitant]
  3. LEVOTHYROXINE [Concomitant]
     Active Substance: LEVOTHYROXINE
  4. FLUTICASONE [Concomitant]
     Active Substance: FLUTICASONE
  5. HUMALOG [Concomitant]
     Active Substance: INSULIN LISPRO
  6. OMEPRAZOLE [Concomitant]
     Active Substance: OMEPRAZOLE
  7. ROSUVASTATIN [Concomitant]
     Active Substance: ROSUVASTATIN
  8. LOSARTAN [Concomitant]
     Active Substance: LOSARTAN
  9. FLOVENT DISCUS [Concomitant]
  10. TRESIBA [Concomitant]
     Active Substance: INSULIN DEGLUDEC
  11. LORATDINE [Concomitant]
  12. ALBUTEROL [Concomitant]
     Active Substance: ALBUTEROL
  13. ACYCLOVIR [Concomitant]
     Active Substance: ACYCLOVIR
  14. FLUCONAZOLE [Concomitant]
     Active Substance: FLUCONAZOLE
  15. FLORAJEN DIGESTION PROBIOTIC [Concomitant]
  16. MULTAVITAMIN [Concomitant]
  17. ASPIRIN [Concomitant]
     Active Substance: ASPIRIN
  18. VITAMIN D3 [Concomitant]
     Active Substance: CHOLECALCIFEROL
  19. VIACTIV CHEWS [Concomitant]
  20. FERROUS GLUCONATE [Concomitant]
     Active Substance: FERROUS GLUCONATE

REACTIONS (4)
  - Urticaria [None]
  - Lip swelling [None]
  - Swelling face [None]
  - Skin reaction [None]

NARRATIVE: CASE EVENT DATE: 20230611
